FAERS Safety Report 8317730-1 (Version None)
Quarter: 2012Q2

REPORT INFORMATION
  Report Type: 
  Country: None (occurrence: None)
  Receive Date: 20120427
  Receipt Date: 20120420
  Transmission Date: 20120825
  Serious: Yes (Hospitalization, Other)
  Sender: FDA-Public Use
  Company Number: US-ASTRAZENECA-2009SE30276

PATIENT
  Age: 52 Year
  Sex: Female

DRUGS (2)
  1. SEROQUEL XR [Suspect]
     Route: 048
  2. NEXIUM [Suspect]
     Route: 048

REACTIONS (8)
  - STAPHYLOCOCCAL INFECTION [None]
  - FUNGAL INFECTION [None]
  - NASOPHARYNGITIS [None]
  - MELANOCYTIC NAEVUS [None]
  - PNEUMONIA [None]
  - CHILLS [None]
  - BRONCHITIS [None]
  - PYREXIA [None]
